FAERS Safety Report 11531844 (Version 1)
Quarter: 2015Q3

REPORT INFORMATION
  Report Type: Spontaneous
  Country: US (occurrence: US)
  Receive Date: 20150903
  Receipt Date: 20150903
  Transmission Date: 20151125
  Serious: No
  Sender: FDA-Public Use
  Company Number: US-ELI_LILLY_AND_COMPANY-US201111005000

PATIENT
  Age: 59 Year
  Sex: Male

DRUGS (1)
  1. HUMALOG MIX75/25 [Suspect]
     Active Substance: INSULIN LISPRO
     Indication: TYPE 2 DIABETES MELLITUS
     Dosage: 22 U, BID
     Dates: start: 2010, end: 201110

REACTIONS (4)
  - Myalgia [Unknown]
  - Arthralgia [Unknown]
  - Injection site swelling [Unknown]
  - Injection site nodule [Unknown]

NARRATIVE: CASE EVENT DATE: 201110
